FAERS Safety Report 18660509 (Version 1)
Quarter: 2020Q4

REPORT INFORMATION
  Report Type: Spontaneous
  Country: IN (occurrence: IN)
  Receive Date: 20201224
  Receipt Date: 20201224
  Transmission Date: 20210114
  Serious: Yes (Other)
  Sender: FDA-Public Use
  Company Number: IN-SHILPA MEDICARE LIMITED-SML-IN-2020-00871

PATIENT
  Age: 5 Year
  Sex: Male

DRUGS (4)
  1. IMATINIB, UNKNOWN [Suspect]
     Active Substance: IMATINIB
     Dosage: TRIAL OF CHANGE IN IMATINIB BRAND
  2. IMATINIB, UNKNOWN [Suspect]
     Active Substance: IMATINIB
     Indication: CHRONIC MYELOID LEUKAEMIA
     Route: 065
  3. IMATINIB, UNKNOWN [Suspect]
     Active Substance: IMATINIB
     Dosage: RESTARTED WITH SAME DOSE AFTER 2 WEEKS
  4. IMATINIB, UNKNOWN [Suspect]
     Active Substance: IMATINIB
     Dosage: RESTARTED WITH SAME DOSE AFTER A MONTH

REACTIONS (5)
  - Drug intolerance [Unknown]
  - Skin exfoliation [Recovered/Resolved]
  - Pruritus [Recovered/Resolved]
  - Therapeutic response decreased [Unknown]
  - Rash maculo-papular [Recovered/Resolved]
